FAERS Safety Report 7144639 (Version 11)
Quarter: 2013Q2

REPORT INFORMATION
  Report Type: Spontaneous
  Country: US (occurrence: US)
  Receive Date: 20091009
  Receipt Date: 20130628
  Transmission Date: 20140414
  Serious: Yes (Life-Threatening, Hospitalization)
  Sender: FDA-Public Use
  Company Number: US-JNJFOC-20090908340

PATIENT
  Age: 43 Year
  Sex: Male
  Weight: 98.88 kg

DRUGS (8)
  1. SIMPONI [Suspect]
     Indication: ANKYLOSING SPONDYLITIS
     Route: 058
     Dates: start: 200908
  2. SIMPONI [Suspect]
     Indication: ANKYLOSING SPONDYLITIS
     Route: 058
     Dates: start: 200907
  3. RIFAMPIN [Concomitant]
     Route: 048
  4. CEFAZOLIN [Concomitant]
     Route: 042
  5. PREVACID [Concomitant]
     Route: 048
  6. VERAPAMIL [Concomitant]
     Route: 048
  7. ZOLOFT [Concomitant]
     Route: 048
  8. KETOPROFEN [Concomitant]
     Route: 048

REACTIONS (8)
  - Staphylococcal abscess [Recovered/Resolved]
  - Staphylococcal bacteraemia [Recovered/Resolved]
  - Hypertension [Unknown]
  - Ingrowing nail [Unknown]
  - Immune system disorder [Unknown]
  - Bronchitis [Unknown]
  - Gastroenteritis viral [Unknown]
  - Splenomegaly [Unknown]
